APPROVED DRUG PRODUCT: HALOPERIDOL
Active Ingredient: HALOPERIDOL LACTATE
Strength: EQ 5MG BASE/ML
Dosage Form/Route: INJECTABLE;INJECTION
Application: A070713 | Product #001
Applicant: WATSON LABORATORIES INC
Approved: May 17, 1988 | RLD: No | RS: No | Type: DISCN